FAERS Safety Report 8517026-9 (Version None)
Quarter: 2012Q3

REPORT INFORMATION
  Report Type: 
  Country: None (occurrence: None)
  Receive Date: 20120718
  Receipt Date: 20120710
  Transmission Date: 20120928
  Serious: Yes (Other)
  Sender: FDA-Public Use
  Company Number: BE-009507513-1207BEL004022

PATIENT

DRUGS (1)
  1. INTRON A [Suspect]
     Indication: MALIGNANT MELANOMA
     Dosage: UNK
     Dates: start: 20021001, end: 20021101

REACTIONS (1)
  - TOXICITY TO VARIOUS AGENTS [None]
